FAERS Safety Report 18708455 (Version 1)
Quarter: 2021Q1

REPORT INFORMATION
  Report Type: Spontaneous
  Country: IN (occurrence: IN)
  Receive Date: 20210106
  Receipt Date: 20210106
  Transmission Date: 20210419
  Serious: Yes (Other)
  Sender: FDA-Public Use
  Company Number: IN-ACIC FINE CHEMICALS INC-2104002

PATIENT
  Age: 24 Year
  Sex: Female

DRUGS (3)
  1. TRANEXAMIC ACID. [Suspect]
     Active Substance: TRANEXAMIC ACID
     Indication: UTERINE HAEMORRHAGE
  2. PROGESTERONE. [Suspect]
     Active Substance: PROGESTERONE
  3. ORAL CONTRACEPTIVE PILLS (UNSPECIFIED) [Suspect]
     Active Substance: UNSPECIFIED INGREDIENT

REACTIONS (5)
  - White blood cell count increased [Unknown]
  - Haemoglobin decreased [Unknown]
  - Alveolar soft part sarcoma [Unknown]
  - Platelet count increased [Unknown]
  - Intentional product use issue [Unknown]
